FAERS Safety Report 9836461 (Version 2)
Quarter: 2014Q1

REPORT INFORMATION
  Report Type: Spontaneous
  Country: US (occurrence: US)
  Receive Date: 20140123
  Receipt Date: 20140123
  Transmission Date: 20141002
  Serious: Yes (Hospitalization)
  Sender: FDA-Public Use
  Company Number: US-ASTRAZENECA-2010SE18124

PATIENT
  Age: 82 Year
  Sex: Male
  Weight: 69.4 kg

DRUGS (2)
  1. PULMICORT RESPULES [Suspect]
     Indication: ASTHMA
     Route: 055
  2. SYMBICORT [Suspect]
     Dosage: 160/4.5, UNKNOWN FREQUENCY
     Route: 055
     Dates: start: 20100402

REACTIONS (6)
  - Pneumonia [Unknown]
  - Dyspnoea [Not Recovered/Not Resolved]
  - Fatigue [Unknown]
  - Tremor [Unknown]
  - Off label use [Not Recovered/Not Resolved]
  - Device misuse [Unknown]
